FAERS Safety Report 18313723 (Version 1)
Quarter: 2020Q3

REPORT INFORMATION
  Report Type: Spontaneous
  Country: US (occurrence: US)
  Receive Date: 20200925
  Receipt Date: 20200925
  Transmission Date: 20201103
  Serious: No
  Sender: FDA-Public Use
  Company Number: US-BAYER-2020-205741

PATIENT
  Age: 74 Year
  Sex: Female

DRUGS (6)
  1. MIRALAX [Suspect]
     Active Substance: POLYETHYLENE GLYCOL 3350
     Indication: GASTROINTESTINAL DISORDER
  2. MILK OF MAGNESIA ORIGINAL [Suspect]
     Active Substance: MAGNESIUM HYDROXIDE
     Indication: CONSTIPATION
     Route: 048
  3. PSYLLIUM HYDROPHILIC MUCILLOID [Concomitant]
     Active Substance: PSYLLIUM HUSK
  4. MAGNESIUM [Concomitant]
     Active Substance: MAGNESIUM
  5. LINZESS [Concomitant]
     Active Substance: LINACLOTIDE
  6. CITRUCEL [Concomitant]
     Active Substance: METHYLCELLULOSE (4000 MPA.S)

REACTIONS (2)
  - Product use in unapproved indication [Unknown]
  - Drug ineffective [Unknown]
